FAERS Safety Report 7483267-5 (Version None)
Quarter: 2011Q2

REPORT INFORMATION
  Report Type: 
  Country: None (occurrence: None)
  Receive Date: 20110509
  Receipt Date: 20110429
  Transmission Date: 20111010
  Serious: No
  Sender: FDA-Public Use
  Company Number: 2011-00243

PATIENT
  Age: 35 Year
  Sex: Female
  Weight: 61.2356 kg

DRUGS (5)
  1. ANTIBIOTIC CEFDINIR [Concomitant]
  2. LEXAPRO [Concomitant]
  3. NASONEX [Concomitant]
  4. METOPROLOL TARTRATE [Concomitant]
  5. ALL ZICAM PRODUCTS [Suspect]

REACTIONS (3)
  - AGEUSIA [None]
  - ANOSMIA [None]
  - NAUSEA [None]
